FAERS Safety Report 26052132 (Version 1)
Quarter: 2025Q4

REPORT INFORMATION
  Report Type: Spontaneous
  Country: EU (occurrence: EU)
  Receive Date: 20251117
  Receipt Date: 20251117
  Transmission Date: 20260118
  Serious: Yes (Other)
  Sender: PHARMAXIS
  Company Number: None

PATIENT
  Age: 27 Year
  Sex: Female

DRUGS (3)
  1. GLUCAGEN [Suspect]
     Active Substance: GLUCAGON HYDROCHLORIDE
     Indication: Imaging procedure
     Route: 051
     Dates: start: 20251027
  2. CLARISCAN [Suspect]
     Active Substance: GADOTERATE MEGLUMINE
     Indication: Imaging procedure
     Route: 051
     Dates: start: 20251027
  3. MANNITOL [Suspect]
     Active Substance: MANNITOL
     Indication: Imaging procedure
     Route: 048
     Dates: start: 20251027

REACTIONS (1)
  - Type I hypersensitivity [Recovered/Resolved]

NARRATIVE: CASE EVENT DATE: 20251027
